FAERS Safety Report 4523549-X (Version None)
Quarter: 2004Q4

REPORT INFORMATION
  Report Type: 
  Country: None (occurrence: None)
  Receive Date: 20041208
  Receipt Date: 20041201
  Transmission Date: 20050328
  Serious: Yes (Disabling)
  Sender: FDA-Public Use
  Company Number: 21154

PATIENT
  Age: 52 Year
  Sex: Male
  Weight: 102.0593 kg

DRUGS (7)
  1. NIASPAN [Suspect]
     Indication: BLOOD CHOLESTEROL INCREASED
     Dosage: 500 MG QPM PO
     Route: 048
     Dates: start: 20041025, end: 20041026
  2. ASPIRIN [Suspect]
     Indication: PROPHYLAXIS
     Dosage: 81 MG QAM PO
     Route: 048
     Dates: start: 20041025
  3. GLUCOPHAGE [Concomitant]
  4. AVANDIA [Concomitant]
  5. CRESTOR [Concomitant]
  6. BANAIR (UNCONFIRMED) [Concomitant]
  7. COREG [Concomitant]

REACTIONS (11)
  - ABDOMINAL PAIN UPPER [None]
  - BLINDNESS TRANSIENT [None]
  - BLINDNESS UNILATERAL [None]
  - DIARRHOEA [None]
  - EYE HAEMORRHAGE [None]
  - EYE REDNESS [None]
  - EYE SWELLING [None]
  - FLUSHING [None]
  - OEDEMA PERIPHERAL [None]
  - RASH PRURITIC [None]
  - SWELLING FACE [None]
